FAERS Safety Report 20211885 (Version 2)
Quarter: 2022Q4

REPORT INFORMATION
  Report Type: Report from Study
  Country: US (occurrence: US)
  Receive Date: 20211221
  Receipt Date: 20221230
  Transmission Date: 20230113
  Serious: No
  Sender: FDA-Public Use
  Company Number: US-ACORDA-ACO_170418_2021

PATIENT
  Age: 87 Year
  Sex: Female

DRUGS (6)
  1. INBRIJA [Suspect]
     Active Substance: LEVODOPA
     Indication: Parkinson^s disease
     Dosage: 2 DOSAGE FORM, PRN, NOT TO EXCEED 5 DOSES A DAY
     Dates: start: 20210910
  2. INBRIJA [Suspect]
     Active Substance: LEVODOPA
     Indication: On and off phenomenon
     Dosage: 2 DOSAGE FORM, PRN, NOT TO EXCEED 5 DOSES A DAY
     Dates: start: 20210910
  3. INBRIJA [Suspect]
     Active Substance: LEVODOPA
     Dosage: 2 DOSAGE FORM, PRN, NOT TO EXCEED 5 DOSES A DAY
     Dates: start: 20210910
  4. INBRIJA [Suspect]
     Active Substance: LEVODOPA
     Dosage: 2 DOSAGE FORM, PRN, NOT TO EXCEED 5 DOSES A DAY
     Dates: start: 20210910
  5. CARBIDOPA AND LEVODOPA [Concomitant]
     Active Substance: CARBIDOPA\LEVODOPA
     Indication: Product used for unknown indication
     Dosage: UNK
     Route: 065
  6. SINEMET [Concomitant]
     Active Substance: CARBIDOPA\LEVODOPA
     Indication: Product used for unknown indication
     Dosage: 25-100 MG
     Route: 065

REACTIONS (8)
  - Therapeutic product effect variable [Unknown]
  - Device use issue [Unknown]
  - Inappropriate schedule of product administration [Unknown]
  - Product residue present [Unknown]
  - Parkinson^s disease [Not Recovered/Not Resolved]
  - Tremor [Not Recovered/Not Resolved]
  - Therapeutic product effect decreased [Unknown]
  - Cough [Not Recovered/Not Resolved]

NARRATIVE: CASE EVENT DATE: 20210918
